FAERS Safety Report 14146518 (Version 1)
Quarter: 2017Q4

REPORT INFORMATION
  Report Type: Spontaneous
  Country: FR (occurrence: FR)
  Receive Date: 20171031
  Receipt Date: 20171031
  Transmission Date: 20180321
  Serious: Yes (Death, Hospitalization)
  Sender: FDA-Public Use
  Company Number: FR-ROCHE-2014840

PATIENT
  Age: 72 Year
  Sex: Female

DRUGS (12)
  1. AVASTIN [Suspect]
     Active Substance: BEVACIZUMAB
     Indication: LUNG NEOPLASM MALIGNANT
     Route: 042
     Dates: start: 20170405
  2. CARBOPLATINE [Suspect]
     Active Substance: CARBOPLATIN
     Indication: LUNG NEOPLASM MALIGNANT
     Route: 042
     Dates: start: 20170405
  3. ALIMTA [Suspect]
     Active Substance: PEMETREXED DISODIUM
     Route: 042
     Dates: start: 20170425
  4. PARACETAMOL [Concomitant]
     Active Substance: ACETAMINOPHEN
  5. CARBOPLATINE [Suspect]
     Active Substance: CARBOPLATIN
     Route: 042
     Dates: start: 20170425
  6. PRIMPERAN [Concomitant]
     Active Substance: METOCLOPRAMIDE HYDROCHLORIDE
  7. LOSARTAN. [Concomitant]
     Active Substance: LOSARTAN
  8. TRAMADOL. [Concomitant]
     Active Substance: TRAMADOL
  9. PANTOPRAZOLE [Concomitant]
     Active Substance: PANTOPRAZOLE
  10. ALIMTA [Suspect]
     Active Substance: PEMETREXED DISODIUM
     Indication: LUNG NEOPLASM MALIGNANT
     Route: 042
     Dates: start: 20170405
  11. PREDNISOLONE. [Concomitant]
     Active Substance: PREDNISOLONE
  12. AVASTIN [Suspect]
     Active Substance: BEVACIZUMAB
     Route: 042
     Dates: start: 20170425

REACTIONS (2)
  - Acute pulmonary oedema [Fatal]
  - Left ventricular failure [Fatal]

NARRATIVE: CASE EVENT DATE: 20170605
